FAERS Safety Report 20772006 (Version 11)
Quarter: 2024Q1

REPORT INFORMATION
  Report Type: Report from Study
  Country: JP (occurrence: JP)
  Receive Date: 20220501
  Receipt Date: 20240312
  Transmission Date: 20240410
  Serious: Yes (Hospitalization, Disabling, Other)
  Sender: FDA-Public Use
  Company Number: JP-BRISTOL-MYERS SQUIBB COMPANY-2022-015466

PATIENT
  Age: 74 Year
  Sex: Male
  Weight: 59.1 kg

DRUGS (10)
  1. YERVOY [Suspect]
     Active Substance: IPILIMUMAB
     Indication: Metastatic renal cell carcinoma
     Dosage: 1 MG/KG, Q3W
     Route: 041
     Dates: start: 20210803, end: 20210803
  2. YERVOY [Suspect]
     Active Substance: IPILIMUMAB
     Dosage: 1 MG/KG, Q3W
     Route: 041
     Dates: start: 20210824, end: 20210824
  3. YERVOY [Suspect]
     Active Substance: IPILIMUMAB
     Dosage: 1 MG/KG, Q3W
     Route: 041
     Dates: start: 20210914, end: 20210914
  4. OPDIVO [Suspect]
     Active Substance: NIVOLUMAB
     Indication: Metastatic renal cell carcinoma
     Dosage: 240 MG, Q3W
     Route: 041
     Dates: start: 20210803, end: 20210803
  5. OPDIVO [Suspect]
     Active Substance: NIVOLUMAB
     Route: 041
     Dates: start: 20210824, end: 20210824
  6. OPDIVO [Suspect]
     Active Substance: NIVOLUMAB
     Dosage: 240 MG, Q3W
     Route: 041
     Dates: start: 20210914, end: 20210914
  7. OPDIVO [Suspect]
     Active Substance: NIVOLUMAB
     Route: 041
     Dates: start: 20220221, end: 20220221
  8. OPDIVO [Suspect]
     Active Substance: NIVOLUMAB
     Route: 041
     Dates: start: 20220404, end: 20220404
  9. OPDIVO [Suspect]
     Active Substance: NIVOLUMAB
     Route: 041
     Dates: start: 20220502, end: 20220502
  10. OPDIVO [Suspect]
     Active Substance: NIVOLUMAB
     Route: 041
     Dates: start: 20220530, end: 20220530

REACTIONS (4)
  - Pain [Unknown]
  - Immune-mediated enterocolitis [Recovered/Resolved]
  - Immune-mediated renal disorder [Not Recovered/Not Resolved]
  - C-reactive protein increased [Unknown]

NARRATIVE: CASE EVENT DATE: 20210925
